FAERS Safety Report 24228120 (Version 2)
Quarter: 2024Q3

REPORT INFORMATION
  Report Type: Spontaneous
  Country: MA (occurrence: MA)
  Receive Date: 20240820
  Receipt Date: 20240912
  Transmission Date: 20241017
  Serious: Yes (Hospitalization, Other)
  Sender: RANBAXY
  Company Number: MA-SUN PHARMACEUTICAL INDUSTRIES LTD-2024RR-462461

PATIENT
  Age: 63 Year

DRUGS (1)
  1. ERLOTINIB [Suspect]
     Active Substance: ERLOTINIB
     Indication: Bronchial carcinoma
     Dosage: 150 MILLIGRAM, DAILY, 1 CP
     Route: 065
     Dates: start: 2022

REACTIONS (1)
  - Acute generalised exanthematous pustulosis [Recovering/Resolving]
